FAERS Safety Report 23155134 (Version 1)
Quarter: 2023Q4

REPORT INFORMATION
  Report Type: Spontaneous
  Country: US (occurrence: US)
  Receive Date: 20231107
  Receipt Date: 20231107
  Transmission Date: 20240110
  Serious: No
  Sender: FDA-Public Use
  Company Number: US-GALDERMA-US2023013972

PATIENT

DRUGS (1)
  1. TWYNEO [Suspect]
     Active Substance: BENZOYL PEROXIDE\TRETINOIN
     Indication: Acne
     Dosage: 1 DOSAGE FORM, USED DAILY
     Route: 061
     Dates: start: 2022

REACTIONS (2)
  - Drug ineffective [Not Recovered/Not Resolved]
  - Product storage error [Recovered/Resolved]

NARRATIVE: CASE EVENT DATE: 20220101
